FAERS Safety Report 4802726-4 (Version None)
Quarter: 2005Q4

REPORT INFORMATION
  Report Type: 
  Country: None (occurrence: None)
  Receive Date: 20051014
  Receipt Date: 20040923
  Transmission Date: 20060501
  Serious: Yes (Life-Threatening)
  Sender: FDA-Public Use
  Company Number: 04P-163-0274401-00

PATIENT
  Age: 33 Year
  Sex: Male

DRUGS (3)
  1. KALETRA [Suspect]
     Dosage: 666 MG, 2 IN 1 D, PER ORAL
     Route: 048
     Dates: start: 20030606
  2. EFAVIRENZ [Suspect]
     Dosage: 600 MG, 1 IN 1 D, PER ORAL
     Route: 048
     Dates: start: 20030606
  3. DAPSONE [Concomitant]

REACTIONS (1)
  - BLOOD TRIGLYCERIDES INCREASED [None]
